FAERS Safety Report 4638483-4 (Version None)
Quarter: 2005Q2

REPORT INFORMATION
  Report Type: 
  Country: None (occurrence: None)
  Receive Date: 20050418
  Receipt Date: 20050329
  Transmission Date: 20051028
  Serious: Yes (Hospitalization)
  Sender: FDA-Public Use
  Company Number: FR_050306126

PATIENT
  Age: 68 Year
  Sex: Female
  Weight: 52 kg

DRUGS (11)
  1. EVISTA [Suspect]
     Indication: OSTEOPOROSIS
     Dosage: 60 MG DAY
     Dates: end: 20040615
  2. TENORMINE (ATENOLOL EG) [Concomitant]
  3. TRIMEBUTINE [Concomitant]
  4. TOPHIGIL [Concomitant]
  5. LACRYVISC (CARBOMER0 [Concomitant]
  6. SULFARLEM (ANTETHOLE TRITHIONE0 [Concomitant]
  7. ARTISIAL [Concomitant]
  8. KARDEGIC (ACETYLSALICYLATE LYSINE) [Concomitant]
  9. MIANSERIN [Concomitant]
  10. URBANYL (CLOBAZAM) [Concomitant]
  11. ZOPICLONE (ZOPLICLONE) [Concomitant]

REACTIONS (6)
  - AORTIC VALVE INCOMPETENCE [None]
  - HYPERTENSION [None]
  - RETINAL ISCHAEMIA [None]
  - RETINAL VEIN OCCLUSION [None]
  - RETINAL VEIN THROMBOSIS [None]
  - VISUAL ACUITY REDUCED [None]
